FAERS Safety Report 23439575 (Version 1)
Quarter: 2024Q1

REPORT INFORMATION
  Report Type: Spontaneous
  Country: US (occurrence: US)
  Receive Date: 20240124
  Receipt Date: 20240124
  Transmission Date: 20240410
  Serious: No
  Sender: FDA-Public Use
  Company Number: US-BAYER-2024A012515

PATIENT
  Age: 36 Year
  Sex: Female
  Weight: 125 kg

DRUGS (3)
  1. GADAVIST [Suspect]
     Active Substance: GADOBUTROL
     Indication: Pelvic pain
     Dosage: 5,7 ML, ONCE
     Route: 042
     Dates: start: 20240119, end: 20240119
  2. FLUTICASONE [Concomitant]
     Active Substance: FLUTICASONE
  3. DIBENDRYL [Concomitant]
     Dosage: 50 MG

REACTIONS (3)
  - Dizziness [Recovered/Resolved]
  - Pruritus [Recovered/Resolved]
  - Nasal congestion [Recovered/Resolved]

NARRATIVE: CASE EVENT DATE: 20240119
